FAERS Safety Report 16974596 (Version 1)
Quarter: 2019Q4

REPORT INFORMATION
  Report Type: Spontaneous
  Country: US (occurrence: US)
  Receive Date: 20191030
  Receipt Date: 20191030
  Transmission Date: 20200122
  Serious: Yes (Other)
  Sender: FDA-Public Use
  Company Number: US-MYLANLABS-2019M1102750

PATIENT
  Age: 60 Year
  Sex: Male

DRUGS (1)
  1. BUDESONIDE. [Suspect]
     Active Substance: BUDESONIDE
     Indication: CHRONIC OBSTRUCTIVE PULMONARY DISEASE
     Dosage: ADMINISTERED AS PUFFS..

REACTIONS (4)
  - Adrenocortical insufficiency acute [Unknown]
  - Intentional product misuse [Unknown]
  - Hypothalamic pituitary adrenal axis suppression [Unknown]
  - Adrenal insufficiency [Unknown]
